FAERS Safety Report 24281577 (Version 1)
Quarter: 2024Q3

REPORT INFORMATION
  Report Type: Spontaneous
  Country: US (occurrence: US)
  Receive Date: 20240904
  Receipt Date: 20240904
  Transmission Date: 20241017
  Serious: No
  Sender: UROGEN PHARMA
  Company Number: US-UROGEN PHARMA LTD.-2024-UGN-000100

PATIENT

DRUGS (5)
  1. JELMYTO [Suspect]
     Active Substance: MITOMYCIN
     Indication: Ureteric cancer
     Dosage: 80 MILLIGRAM, ONCE A WEEK
     Dates: start: 20240610, end: 20240610
  2. JELMYTO [Suspect]
     Active Substance: MITOMYCIN
     Dosage: 80 MILLIGRAM, ONCE A WEEK
     Dates: start: 20240617, end: 20240617
  3. JELMYTO [Suspect]
     Active Substance: MITOMYCIN
     Dosage: 80 MILLIGRAM, ONCE A WEEK
     Dates: start: 20240624, end: 20240624
  4. JELMYTO [Suspect]
     Active Substance: MITOMYCIN
     Dosage: 80 MILLIGRAM, ONCE A WEEK
     Dates: start: 20240701, end: 20240701
  5. JELMYTO [Suspect]
     Active Substance: MITOMYCIN
     Dosage: 80 MILLIGRAM, ONCE A WEEK
     Dates: start: 20240709, end: 20240709

REACTIONS (1)
  - Rash [Unknown]

NARRATIVE: CASE EVENT DATE: 20240715
